FAERS Safety Report 4473068-4 (Version None)
Quarter: 2004Q4

REPORT INFORMATION
  Report Type: 
  Country: None (occurrence: None)
  Receive Date: 20041013
  Receipt Date: 20041007
  Transmission Date: 20050328
  Serious: Yes (Hospitalization)
  Sender: FDA-Public Use
  Company Number: 2004-09-1149

PATIENT
  Age: 56 Year
  Sex: Male

DRUGS (6)
  1. MELPHALAN [Suspect]
     Indication: MULTIPLE MYELOMA
     Dosage: 360MG PER DAY
     Route: 042
     Dates: start: 20020412, end: 20020702
  2. PANTOPRAZOL [Concomitant]
  3. PRAVASTATIN [Concomitant]
  4. CARVEDILOL [Concomitant]
  5. NITRAZEPAM [Concomitant]
  6. MAGNESIUM GLUTAMATE HYDROBROMIDE [Concomitant]

REACTIONS (4)
  - CANDIDIASIS [None]
  - COUGH [None]
  - PYREXIA [None]
  - SPUTUM CULTURE POSITIVE [None]
